FAERS Safety Report 5327015-3 (Version None)
Quarter: 2007Q2

REPORT INFORMATION
  Report Type: 
  Country: None (occurrence: None)
  Receive Date: 20070220
  Receipt Date: 20061222
  Transmission Date: 20071010
  Serious: No
  Sender: FDA-Public Use
  Company Number: WAES 0612USA03954

PATIENT
  Age: 62 Year
  Sex: Male

DRUGS (7)
  1. JANUVIA [Suspect]
     Indication: DIABETES MELLITUS NON-INSULIN-DEPENDENT
     Dosage: 100 MG/DAILY/PO
     Route: 048
     Dates: start: 20061114
  2. AVANDIA [Concomitant]
  3. LIPITOR [Concomitant]
  4. VICODIN [Concomitant]
  5. ALLOPURINOL [Concomitant]
  6. ASPIRIN [Concomitant]
  7. NORTRIPTYLINE HCL [Concomitant]

REACTIONS (2)
  - AGGRESSION [None]
  - PERSONALITY CHANGE [None]
